FAERS Safety Report 8138442-3 (Version None)
Quarter: 2012Q1

REPORT INFORMATION
  Report Type: 
  Country: None (occurrence: None)
  Receive Date: 20120215
  Receipt Date: 20120208
  Transmission Date: 20120608
  Serious: No
  Sender: FDA-Public Use
  Company Number: US-JNJFOC-20120205432

PATIENT
  Sex: Female
  Weight: 112.95 kg

DRUGS (2)
  1. PREDNISONE TAB [Suspect]
     Indication: RHEUMATOID ARTHRITIS
     Route: 048
  2. REMICADE [Suspect]
     Indication: RHEUMATOID ARTHRITIS
     Route: 042
     Dates: start: 20100101, end: 20120101

REACTIONS (5)
  - DECREASED APPETITE [None]
  - SKIN LESION [None]
  - ABNORMAL LOSS OF WEIGHT [None]
  - HERPES ZOSTER [None]
  - IMMUNOSUPPRESSION [None]
